FAERS Safety Report 6771479-5 (Version None)
Quarter: 2010Q2

REPORT INFORMATION
  Report Type: 
  Country: None (occurrence: None)
  Receive Date: 20100616
  Receipt Date: 20100610
  Transmission Date: 20101027
  Serious: Yes (Death, Life-Threatening)
  Sender: FDA-Public Use
  Company Number: JP-ROCHE-700076

PATIENT
  Sex: Female

DRUGS (18)
  1. TOCILIZUMAB [Suspect]
     Indication: RHEUMATOID ARTHRITIS
     Route: 041
     Dates: start: 20090827, end: 20100304
  2. TOCILIZUMAB [Suspect]
     Route: 041
     Dates: start: 20091022, end: 20091022
  3. TOCILIZUMAB [Suspect]
     Route: 041
     Dates: start: 20091119, end: 20091119
  4. TOCILIZUMAB [Suspect]
     Route: 041
     Dates: start: 20091217, end: 20091217
  5. TOCILIZUMAB [Suspect]
     Route: 041
     Dates: start: 20100114, end: 20100114
  6. TOCILIZUMAB [Suspect]
     Route: 041
     Dates: start: 20100301, end: 20100301
  7. TOCILIZUMAB [Suspect]
     Route: 041
     Dates: start: 20090924, end: 20090924
  8. EPOGIN S [Concomitant]
     Route: 058
  9. PROGRAF [Concomitant]
     Dosage: DRUG: PROGRAF(TACROLIMUS HYDRATE), DOSE FORM: PERORAL AGENT
     Route: 048
     Dates: start: 20090924
  10. PREDONINE [Concomitant]
     Route: 048
  11. TANATRIL [Concomitant]
     Dosage: DRUG: TANATRIL(IMIDAPRIL HYDROCHLORIDE)
     Route: 048
  12. CONIEL [Concomitant]
     Route: 048
  13. BLOPRESS [Concomitant]
     Route: 048
  14. ZETIA [Concomitant]
     Route: 048
  15. LOXONIN [Concomitant]
     Dosage: DOSE FORM: PERORAL AGENT.
     Route: 048
  16. CYTOTEC [Concomitant]
     Route: 048
  17. ATELEC [Concomitant]
     Route: 048
  18. VOLTAREN [Concomitant]
     Dosage: NOTE: TAKEN AS NEEDED;25MG A DAY.
     Route: 054

REACTIONS (2)
  - DEATH [None]
  - RENAL FAILURE [None]
